FAERS Safety Report 22009015 (Version 1)
Quarter: 2023Q1

REPORT INFORMATION
  Report Type: Spontaneous
  Country: US (occurrence: US)
  Receive Date: 20230220
  Receipt Date: 20230220
  Transmission Date: 20230418
  Serious: No
  Sender: FDA-Public Use
  Company Number: US-SANOFI-01493173

PATIENT
  Sex: Male

DRUGS (2)
  1. CEREZYME [Suspect]
     Active Substance: IMIGLUCERASE
     Indication: Gaucher^s disease type I
     Dosage: 4800 IU, QOW
     Route: 065
     Dates: start: 19971209
  2. CEREZYME [Suspect]
     Active Substance: IMIGLUCERASE
     Dosage: 7200 IU, Q3W
     Route: 065

REACTIONS (1)
  - Inappropriate schedule of product administration [Unknown]
